FAERS Safety Report 8718863 (Version 2)
Quarter: 2012Q4

REPORT INFORMATION
  Report Type: 
  Country: GB (occurrence: GB)
  Receive Date: 20120810
  Receipt Date: 20120907
  Transmission Date: 20130627
  Serious: Yes (Other)
  Sender: FDA-Public Use
  Company Number: PHFR2011GB007224

PATIENT
  Sex: Female

DRUGS (3)
  1. CLOZARIL [Suspect]
     Indication: SCHIZOPHRENIA
     Dates: start: 20111204
  2. CLOZARIL [Suspect]
     Dosage: 125 mg, BID
     Route: 048
     Dates: start: 201111
  3. LORAZEPAM [Concomitant]
     Indication: ANXIETY
     Dosage: 1 mg, daily
     Route: 048
     Dates: start: 201112

REACTIONS (4)
  - Schizophrenia [Unknown]
  - Gastrooesophageal reflux disease [Unknown]
  - Hypophagia [Recovered/Resolved]
  - Malaise [Unknown]
